FAERS Safety Report 6967255-0 (Version None)
Quarter: 2010Q3

REPORT INFORMATION
  Report Type: 
  Country: None (occurrence: None)
  Receive Date: 20100907
  Receipt Date: 20100901
  Transmission Date: 20110219
  Serious: Yes (Death, Other)
  Sender: FDA-Public Use
  Company Number: PHHY2010AU58353

PATIENT
  Sex: Male

DRUGS (1)
  1. STALEVO 100 [Suspect]
     Indication: PARKINSON'S DISEASE
     Dosage: UNK

REACTIONS (4)
  - FALL [None]
  - HIP FRACTURE [None]
  - LUNG ADENOCARCINOMA [None]
  - ONCOLOGIC COMPLICATION [None]
